FAERS Safety Report 13936705 (Version 1)
Quarter: 2017Q3

REPORT INFORMATION
  Report Type: Report from Study
  Country: US (occurrence: US)
  Receive Date: 20170905
  Receipt Date: 20170905
  Transmission Date: 20171127
  Serious: Yes (Hospitalization)
  Sender: FDA-Public Use
  Company Number: US-BAYER-2017-167233

PATIENT

DRUGS (3)
  1. GADAVIST [Suspect]
     Active Substance: GADOBUTROL
     Indication: THUNDERCLAP HEADACHE
  2. GADAVIST [Suspect]
     Active Substance: GADOBUTROL
     Indication: NUCLEAR MAGNETIC RESONANCE IMAGING BRAIN
     Dosage: 10 ML, ONCE
     Route: 042
  3. GADAVIST [Suspect]
     Active Substance: GADOBUTROL
     Indication: ANGIOGRAM CEREBRAL

REACTIONS (10)
  - Tendonitis [None]
  - Irritability [None]
  - Visual impairment [None]
  - Thunderclap headache [None]
  - Bone pain [None]
  - Aura [None]
  - Dyspnoea [None]
  - Neuropathy peripheral [None]
  - Malaise [None]
  - Overdose [None]
